FAERS Safety Report 14803337 (Version 2)
Quarter: 2018Q2

REPORT INFORMATION
  Report Type: Spontaneous
  Country: US (occurrence: US)
  Receive Date: 20180425
  Receipt Date: 20180504
  Transmission Date: 20180711
  Serious: Yes (Other)
  Sender: FDA-Public Use
  Company Number: US-AMGEN-USASP2018053418

PATIENT
  Age: 84 Year
  Sex: Male
  Weight: 68.27 kg

DRUGS (7)
  1. REPATHA [Suspect]
     Active Substance: EVOLOCUMAB
     Dosage: 140 MG, Q2WK
     Route: 058
     Dates: start: 20180213
  2. ZETIA [Concomitant]
     Active Substance: EZETIMIBE
     Indication: HYPERTENSION
     Dosage: 10 UNK, QHS
     Dates: start: 20171011
  3. HCTZ [Concomitant]
     Active Substance: HYDROCHLOROTHIAZIDE
     Indication: HYPERTENSION
     Dosage: 25 UNK, QD
     Dates: start: 20100707
  4. COUMARIN [Concomitant]
     Active Substance: COUMARIN
     Indication: PERIPHERAL VASCULAR DISORDER
  5. LOSARTAN. [Concomitant]
     Active Substance: LOSARTAN
     Indication: HYPERTENSION
     Dosage: 50 UNK, QD
     Dates: start: 20170712
  6. COUMARIN [Concomitant]
     Active Substance: COUMARIN
     Indication: CARDIOVASCULAR DISORDER
     Dosage: 3 MG, QD
     Dates: start: 20100707
  7. REPATHA [Suspect]
     Active Substance: EVOLOCUMAB
     Indication: HYPERLIPIDAEMIA
     Dosage: 140 MG, Q2WK
     Route: 058
     Dates: start: 20180116, end: 20180330

REACTIONS (3)
  - Suicidal ideation [Recovered/Resolved]
  - Abulia [Recovered/Resolved]
  - Fatigue [Recovered/Resolved]

NARRATIVE: CASE EVENT DATE: 20180120
